FAERS Safety Report 14406441 (Version 2)
Quarter: 2018Q1

REPORT INFORMATION
  Report Type: Spontaneous
  Country: US (occurrence: US)
  Receive Date: 20180118
  Receipt Date: 20180214
  Transmission Date: 20180509
  Serious: Yes (Death)
  Sender: FDA-Public Use
  Company Number: US-PFIZER INC-2016583378

PATIENT
  Age: 66 Year
  Sex: Female

DRUGS (3)
  1. IBRANCE [Suspect]
     Active Substance: PALBOCICLIB
     Indication: BREAST CANCER METASTATIC
     Dosage: 75 MG, CYCLIC (TAKE WITH FOOD AT SAME TIME EACH DAY FOR 21 DAYS FOLLOWED BY A 1 WEEK REST PERIOD)
     Route: 048
     Dates: start: 20161201
  2. LETROZOLE. [Concomitant]
     Active Substance: LETROZOLE
     Dosage: UNK
  3. IBRANCE [Suspect]
     Active Substance: PALBOCICLIB
     Dosage: 75 MG, CYCLIC  (TAKE WITH FOOD AT SAME TIME EACH DAY FOR 21 DAYS FOLLOWED BY A 1 WEEK REST PERIOD)
     Route: 048
     Dates: start: 20171010

REACTIONS (1)
  - Death [Fatal]

NARRATIVE: CASE EVENT DATE: 20180104
